FAERS Safety Report 15180291 (Version 1)
Quarter: 2018Q3

REPORT INFORMATION
  Report Type: Spontaneous
  Country: JP (occurrence: JP)
  Receive Date: 20180723
  Receipt Date: 20180723
  Transmission Date: 20181010
  Serious: Yes (Other)
  Sender: FDA-Public Use
  Company Number: JP-ROCHE-2155808

PATIENT
  Age: 72 Year
  Sex: Male

DRUGS (3)
  1. EYLEA [Concomitant]
     Active Substance: AFLIBERCEPT
     Indication: AGE-RELATED MACULAR DEGENERATION
     Route: 031
  2. LUCENTIS [Suspect]
     Active Substance: RANIBIZUMAB
     Indication: AGE-RELATED MACULAR DEGENERATION
     Route: 050
  3. VISUDYNE [Suspect]
     Active Substance: VERTEPORFIN
     Indication: AGE-RELATED MACULAR DEGENERATION
     Route: 042

REACTIONS (6)
  - Age-related macular degeneration [Unknown]
  - Exudative retinopathy [Unknown]
  - Retinal degeneration [Unknown]
  - Visual acuity reduced [Unknown]
  - Polypoidal choroidal vasculopathy [Unknown]
  - Haemorrhage [Unknown]
